FAERS Safety Report 19278623 (Version 2)
Quarter: 2021Q3

REPORT INFORMATION
  Report Type: Spontaneous
  Country: NO (occurrence: NO)
  Receive Date: 20210520
  Receipt Date: 20210924
  Transmission Date: 20211014
  Serious: Yes (Hospitalization, Other)
  Sender: FDA-Public Use
  Company Number: NO-SUN PHARMACEUTICAL INDUSTRIES LTD-2021RR-297396

PATIENT
  Age: 42 Year
  Sex: Female

DRUGS (8)
  1. SUMATRIPTAN SUN 6MG/0.5ML INJEKSJONSV?SKE, OPPL?SNING [Suspect]
     Active Substance: SUMATRIPTAN
     Indication: MIGRAINE
     Dosage: UNK, 12 MG 2?3 TIMES A WEEK
     Route: 050
     Dates: start: 2017, end: 20210314
  2. IMOVANE [Concomitant]
     Active Substance: ZOPICLONE
     Indication: PRODUCT USED FOR UNKNOWN INDICATION
     Dosage: 1/2 TABLET UP TO 1 TIMES DAILY. ()
     Route: 048
  3. NARAMIG TAB 2,5 MG [Suspect]
     Active Substance: NARATRIPTAN HYDROCHLORIDE
     Indication: MIGRAINE
     Dosage: UNK, 2.5 GR X2 2?3 TIMES A WEEK
     Route: 050
     Dates: start: 2020, end: 202103
  4. EMGALITY INJ VAESKE 120 MG [Concomitant]
     Indication: MIGRAINE
     Dosage: ONE DOSE PER 4 WEEKS, UNK
     Route: 065
     Dates: start: 2021
  5. PANODIL [Concomitant]
     Active Substance: ACETAMINOPHEN
     Indication: PRODUCT USED FOR UNKNOWN INDICATION
     Dosage: 1 GRAM, QID
     Route: 048
  6. VIMOVO [Concomitant]
     Active Substance: ESOMEPRAZOLE MAGNESIUM\NAPROXEN
     Indication: PRODUCT USED FOR UNKNOWN INDICATION
     Dosage: 1 TABLET UP TO 2 TIMES DAILY. ()
     Route: 048
  7. ZOFRAN [Concomitant]
     Active Substance: ONDANSETRON HYDROCHLORIDE
     Indication: PRODUCT USED FOR UNKNOWN INDICATION
     Dosage: 1 TABLET AS REQUIRED UP TO 2 TIMES DAILY ()
     Route: 048
  8. METOCLOPRAMIDE ORIFARM [Concomitant]
     Indication: PRODUCT USED FOR UNKNOWN INDICATION
     Dosage: 1 TABLET AS REQUIRED UP TO 3 TIMES DAILY. ()
     Route: 048

REACTIONS (6)
  - Drug interaction [Recovering/Resolving]
  - Abdominal pain [Recovering/Resolving]
  - Intentional product use issue [Recovering/Resolving]
  - Gastrointestinal inflammation [Recovered/Resolved]
  - Faecal calprotectin increased [Recovered/Resolved]
  - Terminal ileitis [Recovered/Resolved]

NARRATIVE: CASE EVENT DATE: 20210308
